FAERS Safety Report 16112536 (Version 4)
Quarter: 2021Q1

REPORT INFORMATION
  Report Type: Spontaneous
  Country: US (occurrence: US)
  Receive Date: 20190325
  Receipt Date: 20210203
  Transmission Date: 20210419
  Serious: Yes (Hospitalization)
  Sender: FDA-Public Use
  Company Number: US-PFIZER INC-2018518913

PATIENT
  Age: 43 Year
  Sex: Male

DRUGS (3)
  1. SOMAVERT [Suspect]
     Active Substance: PEGVISOMANT
     Dosage: 20 MG AT 4 DAYS PER WEEK
     Dates: start: 2016
  2. SOMAVERT [Suspect]
     Active Substance: PEGVISOMANT
     Dosage: 15 MG AT 5 DAYS A WEEK
  3. SOMAVERT [Suspect]
     Active Substance: PEGVISOMANT
     Dosage: 20 MG
     Dates: start: 20200101

REACTIONS (10)
  - Intracranial aneurysm [Unknown]
  - Sensory disturbance [Unknown]
  - Anger [Unknown]
  - Feeling abnormal [Unknown]
  - Product dose omission issue [Unknown]
  - Swelling [Unknown]
  - Off label use [Unknown]
  - Blood growth hormone increased [Unknown]
  - Insulin-like growth factor increased [Unknown]
  - Swollen tongue [Unknown]

NARRATIVE: CASE EVENT DATE: 202012
